FAERS Safety Report 7436906-9 (Version None)
Quarter: 2011Q2

REPORT INFORMATION
  Report Type: 
  Country: None (occurrence: None)
  Receive Date: 20110418
  Receipt Date: 20110406
  Transmission Date: 20111010
  Serious: Yes (Other)
  Sender: FDA-Public Use
  Company Number: 2011AP000669

PATIENT
  Age: 24 Year
  Sex: Male

DRUGS (3)
  1. CITALOPRAM HYDROBROMIDE [Suspect]
     Indication: OBSESSIVE-COMPULSIVE DISORDER
     Dosage: 20MG, QD; 40MG, QD
     Dates: end: 20090120
  2. CITALOPRAM HYDROBROMIDE [Suspect]
     Indication: OBSESSIVE-COMPULSIVE DISORDER
     Dosage: 20MG, QD; 40MG, QD
     Dates: start: 20081227
  3. LORAZEPAM [Concomitant]

REACTIONS (7)
  - SEXUAL DYSFUNCTION [None]
  - HEADACHE [None]
  - ORGASMIC SENSATION DECREASED [None]
  - LIBIDO DECREASED [None]
  - PREMATURE EJACULATION [None]
  - SERUM FERRITIN DECREASED [None]
  - DEPRESSION [None]
